FAERS Safety Report 6575953-6 (Version None)
Quarter: 2010Q1

REPORT INFORMATION
  Report Type: 
  Country: None (occurrence: None)
  Receive Date: 20100209
  Receipt Date: 20100201
  Transmission Date: 20100710
  Serious: Yes (Death, Hospitalization)
  Sender: FDA-Public Use
  Company Number: PE-MEDIMMUNE-MEDI-0009254

PATIENT
  Sex: Male

DRUGS (1)
  1. SYNAGIS [Suspect]
     Route: 030
     Dates: start: 20090427, end: 20090819

REACTIONS (7)
  - BRONCHIAL OBSTRUCTION [None]
  - CHRONIC OBSTRUCTIVE PULMONARY DISEASE [None]
  - PNEUMONIA RESPIRATORY SYNCYTIAL VIRAL [None]
  - PSEUDOMEMBRANOUS COLITIS [None]
  - PSEUDOMONAL SEPSIS [None]
  - RESPIRATORY FAILURE [None]
  - URINARY TRACT INFECTION PSEUDOMONAL [None]
